FAERS Safety Report 5901631-X (Version None)
Quarter: 2008Q3

REPORT INFORMATION
  Report Type: 
  Country: None (occurrence: None)
  Receive Date: 20080929
  Receipt Date: 20080916
  Transmission Date: 20090109
  Serious: Yes (Hospitalization)
  Sender: FDA-Public Use
  Company Number: GB-MERCK-0809USA02572

PATIENT
  Age: 81 Year
  Sex: Male

DRUGS (9)
  1. PRINIVIL [Suspect]
     Route: 048
  2. ATENOLOL MF [Suspect]
     Route: 065
  3. OMEPRAZOLE [Concomitant]
     Route: 065
  4. ASPIRIN [Concomitant]
     Route: 065
  5. ATORVASTATIN [Concomitant]
     Route: 065
  6. QUININE [Concomitant]
     Route: 065
  7. ISOSORBIDE MONONITRATE [Suspect]
     Route: 065
  8. AMLODIPINE BESYLATE [Suspect]
     Route: 065
  9. OLMESARTAN MEDOXOMIL [Suspect]
     Route: 048

REACTIONS (8)
  - BRADYCARDIA [None]
  - HYPOCALCAEMIA [None]
  - HYPOKALAEMIA [None]
  - HYPOMAGNESAEMIA [None]
  - HYPOTENSION [None]
  - NAUSEA [None]
  - URINARY TRACT INFECTION [None]
  - VOMITING [None]
